FAERS Safety Report 9341471 (Version 1)
Quarter: 2013Q2

REPORT INFORMATION
  Report Type: Spontaneous
  Country: US (occurrence: US)
  Receive Date: 20130611
  Receipt Date: 20130611
  Transmission Date: 20140414
  Serious: Yes (Other)
  Sender: FDA-Public Use
  Company Number: US-JNJFOC-20130522217

PATIENT
  Sex: Female
  Weight: 113.4 kg

DRUGS (1)
  1. DURAGESIC [Suspect]
     Indication: PAIN
     Route: 062
     Dates: start: 2005

REACTIONS (6)
  - Aortic aneurysm [Not Recovered/Not Resolved]
  - Body height decreased [Not Recovered/Not Resolved]
  - Incision site infection [Recovered/Resolved]
  - Arthritis [Not Recovered/Not Resolved]
  - Product quality issue [Unknown]
  - Wrong technique in drug usage process [Unknown]
